FAERS Safety Report 4926932-3 (Version None)
Quarter: 2006Q1

REPORT INFORMATION
  Report Type: 
  Country: None (occurrence: None)
  Receive Date: 20060228
  Receipt Date: 20050914
  Transmission Date: 20060701
  Serious: No
  Sender: FDA-Public Use
  Company Number: US-GLAXOSMITHKLINE-A0574221A

PATIENT
  Age: 15 Year
  Sex: Male

DRUGS (7)
  1. LAMICTAL [Suspect]
     Indication: DRUG USE FOR UNKNOWN INDICATION
     Dosage: 25MG PER DAY
     Route: 048
  2. ATIVAN [Concomitant]
  3. BUSPAR [Concomitant]
  4. ZOLOFT [Concomitant]
  5. RISPERDAL [Concomitant]
  6. LORATADINE [Concomitant]
  7. VARICELLA VACCINE [Concomitant]

REACTIONS (1)
  - EYE MOVEMENT DISORDER [None]
